FAERS Safety Report 20921401 (Version 1)
Quarter: 2022Q2

REPORT INFORMATION
  Report Type: Spontaneous
  Country: US (occurrence: US)
  Receive Date: 20220606
  Receipt Date: 20220606
  Transmission Date: 20220720
  Serious: No
  Sender: FDA-Public Use
  Company Number: US-BAUSCH-BL-2022-013279

PATIENT
  Sex: Male

DRUGS (2)
  1. RELISTOR [Suspect]
     Active Substance: METHYLNALTREXONE BROMIDE
     Indication: Constipation
     Route: 048
  2. OXYCODONE [Concomitant]
     Active Substance: OXYCODONE
     Indication: Pain
     Route: 065

REACTIONS (5)
  - Fatigue [Unknown]
  - Pain [Unknown]
  - Hyperhidrosis [Unknown]
  - Withdrawal syndrome [Unknown]
  - Product prescribing error [Unknown]
